FAERS Safety Report 8812714 (Version 1)
Quarter: 2012Q4

REPORT INFORMATION
  Report Type: 
  Country: GB (occurrence: GB)
  Receive Date: 20120927
  Receipt Date: 20120927
  Transmission Date: 20130627
  Serious: Yes (Other)
  Sender: FDA-Public Use
  Company Number: GB-ABBOTT-12P-167-0988723-00

PATIENT
  Age: 13 Year
  Sex: Male

DRUGS (1)
  1. EPILIM CHRONO [Suspect]
     Indication: PRODUCT USED FOR UNKNOWN INDICATION
     Dosage: Modified-release granules
     Route: 065

REACTIONS (2)
  - Convulsion [Unknown]
  - Medication residue [Unknown]
